FAERS Safety Report 14200238 (Version 2)
Quarter: 2017Q4

REPORT INFORMATION
  Report Type: Spontaneous
  Country: US (occurrence: US)
  Receive Date: 20171117
  Receipt Date: 20171209
  Transmission Date: 20180321
  Serious: Yes (Other)
  Sender: FDA-Public Use
  Company Number: PHEH2017US036914

PATIENT
  Age: 43 Year
  Sex: Female

DRUGS (1)
  1. COSENTYX [Suspect]
     Active Substance: SECUKINUMAB
     Indication: PSORIASIS
     Dosage: 300 MG, QMO
     Route: 058
     Dates: start: 201702, end: 201710

REACTIONS (7)
  - Lower gastrointestinal haemorrhage [Unknown]
  - Inflammatory bowel disease [Unknown]
  - Inappropriate schedule of drug administration [Unknown]
  - Colitis ulcerative [Unknown]
  - Diarrhoea [Unknown]
  - Gastrointestinal disorder [Unknown]
  - Haematochezia [Unknown]

NARRATIVE: CASE EVENT DATE: 201702
